FAERS Safety Report 8347432 (Version 3)
Quarter: 2013Q3

REPORT INFORMATION
  Report Type: Report from Study
  Country: DE (occurrence: DE)
  Receive Date: 20120120
  Receipt Date: 20130904
  Transmission Date: 20140515
  Serious: Yes (Hospitalization, Other)
  Sender: FDA-Public Use
  Company Number: DE-ABBOTT-12P-062-0894788-00

PATIENT
  Age: 53 Year
  Sex: Male

DRUGS (5)
  1. HUMIRA 40 MG/0.8 ML PEN [Suspect]
     Indication: CROHN^S DISEASE
     Route: 058
     Dates: start: 20110523, end: 20130304
  2. HUMIRA 40 MG/0.8 ML PEN [Suspect]
     Dates: start: 201307
  3. FOLIC ACID [Concomitant]
     Indication: PRODUCT USED FOR UNKNOWN INDICATION
  4. VITAMIN B12 [Concomitant]
     Indication: PRODUCT USED FOR UNKNOWN INDICATION
  5. PANTOZOL [Concomitant]
     Indication: PRODUCT USED FOR UNKNOWN INDICATION

REACTIONS (6)
  - Intestinal perforation [Recovering/Resolving]
  - Haemorrhage [Recovering/Resolving]
  - Gallbladder perforation [Recovered/Resolved]
  - Crohn^s disease [Recovering/Resolving]
  - Weight decreased [Recovered/Resolved]
  - Impaired healing [Recovering/Resolving]
